FAERS Safety Report 20182380 (Version 1)
Quarter: 2021Q4

REPORT INFORMATION
  Report Type: Spontaneous
  Country: US (occurrence: US)
  Receive Date: 20211214
  Receipt Date: 20211214
  Transmission Date: 20220304
  Serious: Yes (Hospitalization)
  Sender: FDA-Public Use
  Company Number: US-MYLANLABS-2021M1092581

PATIENT
  Age: 55 Year
  Sex: Male

DRUGS (48)
  1. METHADONE [Suspect]
     Active Substance: METHADONE HYDROCHLORIDE
     Indication: Drug use disorder
     Dosage: 250 MILLIGRAM, QD, FOR OPIOID USE DISORDER
     Route: 065
     Dates: start: 2017
  2. METHADONE [Suspect]
     Active Substance: METHADONE HYDROCHLORIDE
     Indication: Cancer pain
     Dosage: FOR PAIN
     Route: 065
  3. LORAZEPAM [Suspect]
     Active Substance: LORAZEPAM
     Indication: Agitation
     Dosage: 1 MILLIGRAM, Q6H, TOTAL DOSE (5MG) FOR AGITATION ON DAY 2
     Route: 042
  4. LORAZEPAM [Suspect]
     Active Substance: LORAZEPAM
     Indication: Anxiety
     Dosage: 1 MILLIGRAM, Q6H, TOTAL DOSE (3MG) FOR AGITATION ON DAY 3 AND 5
     Route: 042
  5. LORAZEPAM [Suspect]
     Active Substance: LORAZEPAM
     Dosage: 1 MILLIGRAM, Q4H, FOR ANXIETY (TOTAL 6MG ON DAY 17 AND 6MG ON DAY 18)
     Route: 042
  6. CLONIDINE [Suspect]
     Active Substance: CLONIDINE
     Indication: Cancer pain
     Dosage: 0.1 MILLIGRAM, TID, THREE TIMES DAILY
     Route: 065
  7. CLONIDINE [Suspect]
     Active Substance: CLONIDINE
     Dosage: 0.2 MILLIGRAM, TID, THREE TIMES DAILY
     Route: 065
  8. CLONIDINE [Suspect]
     Active Substance: CLONIDINE
     Dosage: 0.3 MILLIGRAM, TID, THREE TIMES DAILY
     Route: 065
  9. TRAZODONE [Suspect]
     Active Substance: TRAZODONE HYDROCHLORIDE
     Indication: Cancer pain
     Dosage: 50 MILLIGRAM, QD, AT NIGHT ON DAY 2
     Route: 065
  10. TRAZODONE [Suspect]
     Active Substance: TRAZODONE HYDROCHLORIDE
     Dosage: 100 MILLIGRAM, QD, NIGHTLY DOSE FROM DAY 3-DAY 17
     Route: 065
  11. TRAMADOL [Suspect]
     Active Substance: TRAMADOL
     Indication: Cancer pain
     Dosage: 100 MILLIGRAM, QD, AT NIGHT, PRN DOSE
     Route: 065
  12. LIDOCAINE [Suspect]
     Active Substance: LIDOCAINE
     Indication: Cancer pain
     Dosage: 2 MILLIGRAM/KILOGRAM, LOADING DOSE
     Route: 042
  13. LIDOCAINE [Suspect]
     Active Substance: LIDOCAINE
     Dosage: 1 MILLIGRAM/KILOGRAM, MAINTENANCE DOSE
     Route: 042
  14. DIAZEPAM [Suspect]
     Active Substance: DIAZEPAM
     Indication: Anxiety
     Dosage: 10 MILLIGRAM, Q8H, ON DAY 6 AND DAY 7
     Route: 048
  15. DIAZEPAM [Suspect]
     Active Substance: DIAZEPAM
     Dosage: 10 MILLIGRAM, Q6H, ON DAY 10, 11 AND 13
     Route: 048
  16. DIAZEPAM [Suspect]
     Active Substance: DIAZEPAM
     Dosage: 10 MILLIGRAM, Q4H, ON DAY 16 AND DAY 17
     Route: 048
  17. DIAZEPAM [Suspect]
     Active Substance: DIAZEPAM
     Dosage: 5 MILLIGRAM, Q6H, PRN DOSE FROM DAY 6-DAY 13
     Route: 048
  18. DIAZEPAM [Suspect]
     Active Substance: DIAZEPAM
     Dosage: 5 MILLIGRAM, Q4H, PRN DOSE ON DAY 16-17
     Route: 048
  19. ACETAMINOPHEN\OXYCODONE HYDROCHLORIDE [Suspect]
     Active Substance: ACETAMINOPHEN\OXYCODONE HYDROCHLORIDE
     Indication: Cancer pain
     Dosage: UNK
     Route: 065
  20. MORPHINE SULFATE [Suspect]
     Active Substance: MORPHINE SULFATE
     Indication: Cancer pain
     Dosage: UNK
     Route: 065
  21. MORPHINE SULFATE [Suspect]
     Active Substance: MORPHINE SULFATE
     Indication: Cancer pain
     Dosage: 291 MILLIGRAM, EQUIVALENT DOSE ON DAY 2
     Route: 048
  22. MORPHINE SULFATE [Suspect]
     Active Substance: MORPHINE SULFATE
     Dosage: 626 MILLIGRAM, EQUIVALENT DOSE ON DAY 3
     Route: 048
  23. MORPHINE SULFATE [Suspect]
     Active Substance: MORPHINE SULFATE
     Dosage: 812 MILLIGRAM, EQUIVALENT DOSE ON DAY 5
     Route: 048
  24. MORPHINE SULFATE [Suspect]
     Active Substance: MORPHINE SULFATE
     Dosage: 960 MILLIGRAM, EQUIVALENT DOSE ON DAY 6
     Route: 048
  25. MORPHINE SULFATE [Suspect]
     Active Substance: MORPHINE SULFATE
     Dosage: 1125 MILLIGRAM, EQUIVALENT DOSE ON DAY 7
     Route: 048
  26. MORPHINE SULFATE [Suspect]
     Active Substance: MORPHINE SULFATE
     Dosage: 720 MILLIGRAM, EQUIVALENT DOSE ON DAY 10
     Route: 048
  27. MORPHINE SULFATE [Suspect]
     Active Substance: MORPHINE SULFATE
     Dosage: 744 MILLIGRAM, EQUIVALENT DOSE ON DAY 11
     Route: 048
  28. MORPHINE SULFATE [Suspect]
     Active Substance: MORPHINE SULFATE
     Dosage: 1044 MILLIGRAM, EQUIVALENT DOSE ON DAY 13
     Route: 048
  29. MORPHINE SULFATE [Suspect]
     Active Substance: MORPHINE SULFATE
     Dosage: 790 MILLIGRAM, EQUIVALENT DOSE ON DAY 16
     Route: 048
  30. MORPHINE SULFATE [Suspect]
     Active Substance: MORPHINE SULFATE
     Dosage: 1131 MILLIGRAM, EQUIVALENT DOSE ON DAY 17
     Route: 048
  31. MORPHINE SULFATE [Suspect]
     Active Substance: MORPHINE SULFATE
     Dosage: 804 MILLIGRAM, EQUIVALENT DOSE ON DAY 18
     Route: 048
  32. MORPHINE SULFATE [Suspect]
     Active Substance: MORPHINE SULFATE
     Dosage: 726 MILLIGRAM, EQUIVALENT DOSE ON DAY 19
     Route: 048
  33. HYDROMORPHONE [Suspect]
     Active Substance: HYDROMORPHONE
     Indication: Cancer pain
     Dosage: 0.5 MILLIGRAM, 10 MINS, PCA ON DAY 2
     Route: 042
  34. HYDROMORPHONE [Suspect]
     Active Substance: HYDROMORPHONE
     Dosage: 1 MILLIGRAM, Q4H, RESCUE DOSE ON DAY 2 (5 DOSES)
     Route: 042
  35. HYDROMORPHONE [Suspect]
     Active Substance: HYDROMORPHONE
     Dosage: 0.7 MILLIGRAM, 10 MINS, PCA ON DAY 3
     Route: 042
  36. HYDROMORPHONE [Suspect]
     Active Substance: HYDROMORPHONE
     Dosage: 1.5 MILLIGRAM, Q4H, RESCUE DOSE ON DAY 3 (5 DOSES)
     Route: 042
  37. HYDROMORPHONE [Suspect]
     Active Substance: HYDROMORPHONE
     Dosage: 0.5 MILLIGRAM, QH, PCA ON DAY 5, DAY 6 AND DAY 7
     Route: 042
  38. HYDROMORPHONE [Suspect]
     Active Substance: HYDROMORPHONE
     Dosage: 1 MILLIGRAM, 10 MINS, DEMAND DOSE ON DAY 5, DAY 6 AND DAY 7
     Route: 042
  39. HYDROMORPHONE [Suspect]
     Active Substance: HYDROMORPHONE
     Dosage: 2 MILLIGRAM, RESCUE DOSE ON DAY 5, DAY 6 AND DAY 7 (3 DOSES)
     Route: 042
  40. MORPHINE SULFATE [Suspect]
     Active Substance: MORPHINE SULFATE
     Indication: Cancer pain
     Dosage: 2 MILLIGRAM, QH, PCA ON DAY 10, 11 AND 12
     Route: 042
  41. MORPHINE SULFATE [Suspect]
     Active Substance: MORPHINE SULFATE
     Dosage: 10 MILLIGRAM, 20 MINS, DEMAND DOSE ON DAY 10, 11 AND 12
     Route: 042
  42. MORPHINE SULFATE [Suspect]
     Active Substance: MORPHINE SULFATE
     Dosage: 10 MILLIGRAM, 10 MINS, PCA ON DAY 16 AND 17 (LOCK-OUT DOSE)
     Route: 042
  43. MORPHINE SULFATE [Suspect]
     Active Substance: MORPHINE SULFATE
     Dosage: 10 MILLIGRAM, QH, ON DAY 18
     Route: 042
  44. MORPHINE SULFATE [Suspect]
     Active Substance: MORPHINE SULFATE
     Dosage: 10 MILLIGRAM, QH, PRN DOSE ON DAY 18
     Route: 042
  45. MORPHINE SULFATE [Suspect]
     Active Substance: MORPHINE SULFATE
     Dosage: 15 MILLIGRAM, QH, ON DAY 19
     Route: 042
  46. MORPHINE SULFATE [Suspect]
     Active Substance: MORPHINE SULFATE
     Dosage: 20 MILLIGRAM, QH, PRN DOSE ON DAY 19
     Route: 042
  47. OXYCONTIN [Suspect]
     Active Substance: OXYCODONE HYDROCHLORIDE
     Indication: Cancer pain
     Dosage: 60 MILLIGRAM, Q8H, EXTENDED-RELEASE ON DAY 16 AND DAY 17
     Route: 048
  48. GABAPENTIN [Concomitant]
     Active Substance: GABAPENTIN
     Indication: Cancer pain
     Dosage: UNK
     Route: 065

REACTIONS (1)
  - Drug ineffective [Unknown]
